FAERS Safety Report 6286780-1 (Version None)
Quarter: 2009Q3

REPORT INFORMATION
  Report Type: 
  Country: None (occurrence: None)
  Receive Date: 20090728
  Receipt Date: 20090716
  Transmission Date: 20100115
  Serious: Yes (Hospitalization)
  Sender: FDA-Public Use
  Company Number: BR-PFIZER INC-2009241916

PATIENT
  Age: 28 Year

DRUGS (1)
  1. FRADEMICIN [Suspect]
     Dosage: 600 MG, 1X/DAY
     Dates: start: 20090601, end: 20090601

REACTIONS (4)
  - ABDOMINAL PAIN [None]
  - FLATULENCE [None]
  - GALLBLADDER DISORDER [None]
  - GASTRITIS [None]
